FAERS Safety Report 10429435 (Version 1)
Quarter: 2014Q3

REPORT INFORMATION
  Report Type: Spontaneous
  Country: US (occurrence: None)
  Receive Date: 20140902
  Receipt Date: 20140902
  Transmission Date: 20150326
  Serious: No
  Sender: FDA-Public Use
  Company Number: None

PATIENT
  Age: 42 Year
  Sex: Female

DRUGS (8)
  1. INSULIN ASPART [Suspect]
     Active Substance: INSULIN ASPART
     Indication: HYPERKALAEMIA
     Dosage: 10 UNITS ONCE IV
     Route: 042
     Dates: start: 20140727
  2. IBUPROFEN. [Concomitant]
     Active Substance: IBUPROFEN
  3. ALPRAZOLAM. [Concomitant]
     Active Substance: ALPRAZOLAM
  4. NEPHROCAPS [Concomitant]
     Active Substance: ASCORBIC ACID\BIOTIN\CYANOCOBALAMIN\FOLIC ACID\NIACIN\PANTOTHENIC ACID\PYRIDOXINE\RIBOFLAVIN\THIAMINE
  5. QUETIAPINE [Concomitant]
     Active Substance: QUETIAPINE
  6. BENADRYL [Concomitant]
     Active Substance: DIPHENHYDRAMINE HYDROCHLORIDE
  7. SEVELAMER [Concomitant]
     Active Substance: SEVELAMER
  8. METOPROLOL [Concomitant]
     Active Substance: METOPROLOL

REACTIONS (2)
  - Convulsion [None]
  - Blood glucose decreased [None]

NARRATIVE: CASE EVENT DATE: 20140727
